FAERS Safety Report 6638783-2 (Version None)
Quarter: 2010Q1

REPORT INFORMATION
  Report Type: 
  Country: None (occurrence: None)
  Receive Date: 20100317
  Receipt Date: 20100305
  Transmission Date: 20100710
  Serious: Yes (Other)
  Sender: FDA-Public Use
  Company Number: GB-PFIZER INC-2010029410

PATIENT
  Age: 46 Year
  Sex: Female

DRUGS (1)
  1. SERTRALINE HYDROCHLORIDE [Suspect]
     Dosage: 100 MG DAILY
     Dates: start: 20090101

REACTIONS (2)
  - ABNORMAL BEHAVIOUR [None]
  - AGITATION [None]
